FAERS Safety Report 14374068 (Version 5)
Quarter: 2018Q2

REPORT INFORMATION
  Report Type: Report from Study
  Country: KR (occurrence: KR)
  Receive Date: 20180111
  Receipt Date: 20180416
  Transmission Date: 20180711
  Serious: Yes (Hospitalization)
  Sender: FDA-Public Use
  Company Number: KR-ROCHE-2052945

PATIENT
  Age: 72 Year
  Sex: Male
  Weight: 70 kg

DRUGS (24)
  1. MUCOSTEN [Concomitant]
     Indication: HYPERSENSITIVITY
     Route: 065
     Dates: start: 20171222, end: 20171223
  2. BEECOM HEXA [Concomitant]
     Indication: SUPPORTIVE CARE
     Route: 065
     Dates: start: 20180123
  3. FURTMAN INJ. [Concomitant]
     Indication: SUPPORTIVE CARE
     Route: 065
     Dates: start: 20180108, end: 20180117
  4. SODIUM BICARBONATE. [Concomitant]
     Active Substance: SODIUM BICARBONATE
     Indication: HYPONATRAEMIA
     Route: 065
     Dates: start: 20180109, end: 20180110
  5. CYNACTEN [Concomitant]
     Dosage: FOR ACTH TEST
     Route: 065
     Dates: start: 20180118, end: 20180118
  6. ZANIDIP [Concomitant]
     Active Substance: LERCANIDIPINE HYDROCHLORIDE
     Indication: HYPERTENSION
     Route: 065
     Dates: start: 2010
  7. PETHIDINE [Concomitant]
     Active Substance: MEPERIDINE
     Indication: BIOPSY
     Route: 065
     Dates: start: 20171222, end: 20171222
  8. FREAMINE III NOS [Concomitant]
     Active Substance: AMINO ACIDS
     Indication: SUPPORTIVE CARE
     Route: 065
     Dates: start: 20180123
  9. TYLENOL [Concomitant]
     Active Substance: ACETAMINOPHEN
     Indication: PYREXIA
     Route: 065
     Dates: start: 20180110, end: 20180122
  10. TANTUM (SOUTH KOREA) [Concomitant]
     Dosage: PROPHYLACTIC STOMATITIS
     Route: 065
     Dates: start: 20180117
  11. K-CONTIN [Concomitant]
     Dosage: PROPHYLACTIC HYPOKALEMIA
     Route: 065
     Dates: start: 20180115, end: 20180115
  12. MINOCIN [Concomitant]
     Active Substance: MINOCYCLINE HYDROCHLORIDE
     Indication: RASH
     Route: 065
     Dates: start: 20180115
  13. TAMIFLU [Concomitant]
     Active Substance: OSELTAMIVIR PHOSPHATE
     Indication: INFLUENZA
  14. MUCOSTEN [Concomitant]
     Dosage: PROPHYLACTIC CT CONTRAST HYPERSENSITIVITY
     Route: 065
     Dates: start: 20180112, end: 20180112
  15. URSA [Concomitant]
     Active Substance: URSODIOL
     Indication: ASPARTATE AMINOTRANSFERASE INCREASED
  16. ATEZOLIZUMAB. [Suspect]
     Active Substance: ATEZOLIZUMAB
     Indication: TRANSITIONAL CELL CARCINOMA
     Dosage: DATE OF MOST RECENT DOSE OF ATEZOLIZUMAB PRIOR TO SERIOUS ADVERSE EVENT (SAE) ONSET:28/DEC/2017 (840
     Route: 042
     Dates: start: 20171228
  17. CACL2 [Concomitant]
     Dosage: PROPHYLATIC HYPOCALCEMIA
     Route: 065
     Dates: start: 20180115, end: 20180115
  18. ASCORBIC ACID. [Concomitant]
     Active Substance: ASCORBIC ACID
     Indication: SUPPORTIVE CARE
     Route: 065
     Dates: start: 20180123
  19. SODIUM BICARBONATE. [Concomitant]
     Active Substance: SODIUM BICARBONATE
     Dosage: PROPHYLACTIC STOMATITIS
     Route: 065
     Dates: start: 20180117
  20. ALBUMIN [Concomitant]
     Active Substance: ALBUMIN HUMAN
     Indication: HYPOALBUMINAEMIA
     Route: 065
     Dates: start: 20180111, end: 20180111
  21. COBIMETINIB. [Suspect]
     Active Substance: COBIMETINIB
     Indication: TRANSITIONAL CELL CARCINOMA
     Dosage: DOSE OF LAST COBIMETINIB ADMINISTERED PRIOR TO SAE ONSET ON 07/JAN/2018 (60 MG)?ONCE A DAY ON DAYS 1
     Route: 048
     Dates: start: 20171228
  22. DENOGAN [Concomitant]
     Active Substance: PROPACETAMOL HYDROCHLORIDE
     Indication: PYREXIA
     Route: 065
     Dates: start: 20180108, end: 20180119
  23. URSA [Concomitant]
     Active Substance: URSODIOL
     Indication: ALANINE AMINOTRANSFERASE INCREASED
     Route: 065
     Dates: start: 20180115, end: 20180122
  24. NORVASC [Concomitant]
     Active Substance: AMLODIPINE BESYLATE
     Indication: HYPERTENSION
     Route: 065
     Dates: start: 20180117, end: 20180205

REACTIONS (1)
  - Enterocolitis [Recovered/Resolved]

NARRATIVE: CASE EVENT DATE: 20171230
